FAERS Safety Report 5796760-8 (Version None)
Quarter: 2008Q2

REPORT INFORMATION
  Report Type: 
  Country: None (occurrence: None)
  Receive Date: 20080630
  Receipt Date: 20080630
  Transmission Date: 20081010
  Serious: Yes (Hospitalization, Disabling)
  Sender: FDA-Public Use
  Company Number: None

PATIENT
  Age: 11 Year
  Sex: Female
  Weight: 43.7 kg

DRUGS (1)
  1. INFLIXAMAB [Suspect]
     Indication: CROHN'S DISEASE
     Dosage: 200 MG EVERY 6 WEEKS IV
     Route: 042
     Dates: start: 20070701, end: 20080401

REACTIONS (4)
  - DRUG EFFECT DECREASED [None]
  - LUPUS-LIKE SYNDROME [None]
  - PERICARDIAL EFFUSION [None]
  - PLEURAL EFFUSION [None]
